FAERS Safety Report 8734567 (Version 2)
Quarter: 2013Q1

REPORT INFORMATION
  Report Type: Report from Study
  Country: US (occurrence: US)
  Receive Date: 20120821
  Receipt Date: 20130226
  Transmission Date: 20140127
  Serious: Yes (Hospitalization)
  Sender: FDA-Public Use
  Company Number: US-BRISTOL-MYERS SQUIBB COMPANY-16612723

PATIENT
  Age: 60 Year
  Sex: Male

DRUGS (8)
  1. ARIPIPRAZOLE [Suspect]
     Indication: SCHIZOPHRENIA
     Dates: start: 20120430, end: 20120506
  2. ZOLOFT [Concomitant]
     Dates: start: 201110
  3. DEPAKOTE [Concomitant]
     Dates: start: 200909
  4. GLYBURIDE [Concomitant]
     Dates: start: 200506
  5. GEMFIBROZIL [Concomitant]
     Dates: start: 2004
  6. LOSARTAN [Concomitant]
     Dates: start: 200907
  7. AMLODIPINE BESYLATE [Concomitant]
     Dates: start: 200907
  8. ASPIRIN [Concomitant]
     Dates: start: 201101

REACTIONS (1)
  - Psychotic disorder [Recovered/Resolved]
